FAERS Safety Report 17353735 (Version 1)
Quarter: 2020Q1

REPORT INFORMATION
  Report Type: Spontaneous
  Country: AU (occurrence: AU)
  Receive Date: 20200130
  Receipt Date: 20200130
  Transmission Date: 20200409
  Serious: Yes (Other)
  Sender: FDA-Public Use
  Company Number: None

PATIENT
  Age: 25 Year
  Sex: Female
  Weight: 62 kg

DRUGS (2)
  1. LAMOTRIGINE 50MG BID [Concomitant]
  2. LAMICTAL [Suspect]
     Active Substance: LAMOTRIGINE
     Indication: EPILEPSY
     Dosage: ?          QUANTITY:56 TABLET(S);?
     Route: 048
     Dates: start: 20110401, end: 20200130

REACTIONS (2)
  - Optic atrophy [None]
  - Cataract subcapsular [None]

NARRATIVE: CASE EVENT DATE: 20200116
